FAERS Safety Report 16879498 (Version 2)
Quarter: 2019Q4

REPORT INFORMATION
  Report Type: Spontaneous
  Country: US (occurrence: US)
  Receive Date: 20191003
  Receipt Date: 20191004
  Transmission Date: 20200122
  Serious: No
  Sender: FDA-Public Use
  Company Number: US-ELI_LILLY_AND_COMPANY-US201910000123

PATIENT
  Sex: Female

DRUGS (1)
  1. TRULICITY [Suspect]
     Active Substance: DULAGLUTIDE
     Indication: PRODUCT USED FOR UNKNOWN INDICATION
     Dosage: 0.75 MG, UNKNOWN
     Route: 065
     Dates: start: 20190905

REACTIONS (10)
  - Skin haemorrhage [Unknown]
  - Scratch [Not Recovered/Not Resolved]
  - Blood glucose fluctuation [Recovered/Resolved]
  - Somnolence [Unknown]
  - Urticaria [Recovering/Resolving]
  - Hyperhidrosis [Recovered/Resolved]
  - Effusion [Unknown]
  - Pain [Unknown]
  - Pruritus [Not Recovered/Not Resolved]
  - Hypersensitivity [Unknown]

NARRATIVE: CASE EVENT DATE: 20190905
